FAERS Safety Report 5462897-6 (Version None)
Quarter: 2007Q3

REPORT INFORMATION
  Report Type: 
  Country: None (occurrence: None)
  Receive Date: 20070920
  Receipt Date: 20070105
  Transmission Date: 20080115
  Serious: No
  Sender: FDA-Public Use
  Company Number: US-BAUSCH-2007BL000039

PATIENT
  Age: 36 Year
  Sex: Female

DRUGS (2)
  1. NEOMYCIN AND POLYMYXIN B SULFATES AND HYDROCORTISONE OTIC SUSPENSION [Suspect]
     Route: 047
     Dates: start: 20070105, end: 20070105
  2. PATANOL [Concomitant]
     Indication: EYE ALLERGY
     Route: 047

REACTIONS (3)
  - EYE IRRITATION [None]
  - EYE PAIN [None]
  - MEDICATION ERROR [None]
